FAERS Safety Report 4730195-1 (Version None)
Quarter: 2005Q3

REPORT INFORMATION
  Report Type: 
  Country: None (occurrence: None)
  Receive Date: 20050801
  Receipt Date: 20050723
  Transmission Date: 20060218
  Serious: Yes (Other)
  Sender: FDA-Public Use
  Company Number: GB-GLAXOSMITHKLINE-B0388614A

PATIENT
  Age: 29 Year
  Sex: Female
  Weight: 55 kg

DRUGS (5)
  1. AMOXICILLIN AND CLAVULANATE POTASSIUM [Suspect]
     Indication: URINARY TRACT INFECTION
     Route: 048
     Dates: start: 20050704, end: 20050705
  2. CERAZETTE [Concomitant]
     Indication: CONTRACEPTION
     Route: 048
     Dates: start: 20040501, end: 20041101
  3. DICLOFENAC SODIUM [Concomitant]
     Indication: PAIN
     Dosage: 50MG THREE TIMES PER DAY
     Route: 048
     Dates: start: 20050627
  4. ACETAMINOPHEN [Concomitant]
     Indication: PAIN
     Dosage: 1G PER DAY
     Route: 048
     Dates: start: 20050627
  5. ANAESTHETIC [Concomitant]
     Dates: start: 20050627

REACTIONS (3)
  - ABDOMINAL PAIN UPPER [None]
  - CHEST PAIN [None]
  - JAUNDICE [None]
